FAERS Safety Report 20773624 (Version 7)
Quarter: 2022Q4

REPORT INFORMATION
  Report Type: Spontaneous
  Country: GB (occurrence: GB)
  Receive Date: 20220502
  Receipt Date: 20221007
  Transmission Date: 20230112
  Serious: No
  Sender: FDA-Public Use
  Company Number: GB-PFIZER INC-202200402074

PATIENT
  Age: 72 Year
  Sex: Female

DRUGS (1)
  1. GENOTROPIN [Suspect]
     Active Substance: SOMATROPIN
     Indication: Growth hormone deficiency
     Dosage: 5.3 MG

REACTIONS (3)
  - Intentional device misuse [Unknown]
  - Device leakage [Unknown]
  - Needle issue [Unknown]
